FAERS Safety Report 5017563-8 (Version None)
Quarter: 2006Q2

REPORT INFORMATION
  Report Type: 
  Country: None (occurrence: None)
  Receive Date: 20060601
  Receipt Date: 20060601
  Transmission Date: 20061013
  Serious: Yes (Hospitalization)
  Sender: FDA-Public Use
  Company Number: None

PATIENT
  Age: 79 Year
  Sex: Male
  Weight: 73.2 kg

DRUGS (1)
  1. MORPHINE [Suspect]
     Indication: ARTHRALGIA
     Dosage: 40 MG Q6H PO
     Route: 048
     Dates: start: 20060225

REACTIONS (6)
  - HAEMATEMESIS [None]
  - HAEMORRHAGE [None]
  - MENTAL STATUS CHANGES [None]
  - OVERDOSE [None]
  - PNEUMONIA ASPIRATION [None]
  - SINUS DISORDER [None]
